FAERS Safety Report 6090728-2 (Version None)
Quarter: 2009Q1

REPORT INFORMATION
  Report Type: 
  Country: None (occurrence: None)
  Receive Date: 20090224
  Receipt Date: 20090127
  Transmission Date: 20090719
  Serious: No
  Sender: FDA-Public Use
  Company Number: US-ABBOTT-09P-163-0500565-00

PATIENT
  Sex: Male
  Weight: 90.8 kg

DRUGS (7)
  1. SIMCOR [Suspect]
     Indication: BLOOD TRIGLYCERIDES INCREASED
     Dosage: 500/20MG QHS
     Route: 048
     Dates: start: 20081201, end: 20090119
  2. SIMCOR [Suspect]
     Indication: BLOOD CHOLESTEROL INCREASED
  3. METFORMIN [Suspect]
     Indication: TYPE 2 DIABETES MELLITUS
     Route: 048
     Dates: start: 20080101
  4. NIASPAN [Concomitant]
     Indication: BLOOD TRIGLYCERIDES INCREASED
     Route: 048
     Dates: start: 20081001, end: 20081201
  5. NIASPAN [Concomitant]
     Indication: BLOOD CHOLESTEROL INCREASED
     Route: 048
     Dates: start: 20090101
  6. GLIPIZIDE [Concomitant]
     Indication: TYPE 2 DIABETES MELLITUS
  7. OMEPRAZOLE [Concomitant]
     Indication: DRUG USE FOR UNKNOWN INDICATION
     Route: 048

REACTIONS (6)
  - BLOOD GLUCOSE INCREASED [None]
  - DIARRHOEA [None]
  - FATIGUE [None]
  - FEELING ABNORMAL [None]
  - INFLUENZA LIKE ILLNESS [None]
  - PAIN [None]
